FAERS Safety Report 12863180 (Version 1)
Quarter: 2016Q4

REPORT INFORMATION
  Report Type: Spontaneous
  Country: US (occurrence: US)
  Receive Date: 20161019
  Receipt Date: 20161019
  Transmission Date: 20170207
  Serious: Yes (Hospitalization)
  Sender: FDA-Public Use
  Company Number: US-LANTHEUS-LMI-2016-04091

PATIENT
  Age: 64 Year
  Sex: Female
  Weight: 96 kg

DRUGS (5)
  1. LISINOPRIL. [Concomitant]
     Active Substance: LISINOPRIL
     Indication: HYPERTENSION
     Dosage: UNK UNK, QD
     Route: 048
  2. DEFINITY [Suspect]
     Active Substance: PERFLUTREN
     Dosage: 3 ML POST-EXERCISE(1.5 ML DEFINITY PREPARED IN 8.5 ML PFNS)
     Route: 042
     Dates: start: 20161012, end: 20161012
  3. DEFINITY [Suspect]
     Active Substance: PERFLUTREN
     Indication: STRESS ECHOCARDIOGRAM
     Dosage: 2 ML PRE-EXERCISE(1.5 ML DEFINITY PREPARED IN 8.5 ML PFNS)
     Route: 042
     Dates: start: 20161012, end: 20161012
  4. ASPIRIN                            /00002701/ [Concomitant]
     Active Substance: ASPIRIN
     Indication: SUPPLEMENTATION THERAPY
     Dosage: UNK, QD
     Route: 048
  5. TRIAMTERENE AND HYDROCHLOROTHIAZIDE [Concomitant]
     Active Substance: HYDROCHLOROTHIAZIDE\TRIAMTERENE
     Indication: HYPERTENSION
     Dosage: UNK, QD
     Route: 048

REACTIONS (9)
  - Dysphonia [Unknown]
  - Rash [Unknown]
  - Angioedema [Unknown]
  - Dysarthria [Unknown]
  - Erythema [Unknown]
  - Swollen tongue [Unknown]
  - Lip swelling [Unknown]
  - Swelling face [Unknown]
  - Paraesthesia oral [Unknown]

NARRATIVE: CASE EVENT DATE: 20161012
